FAERS Safety Report 9382368 (Version 1)
Quarter: 2013Q3

REPORT INFORMATION
  Report Type: Spontaneous
  Country: US (occurrence: US)
  Receive Date: 20130703
  Receipt Date: 20130703
  Transmission Date: 20140515
  Serious: Yes (Other)
  Sender: FDA-Public Use
  Company Number: PHEH2013US014171

PATIENT
  Sex: Female
  Weight: 102.4 kg

DRUGS (1)
  1. FEMARA [Suspect]
     Dosage: UNK UKN, UNK

REACTIONS (6)
  - Lung disorder [Unknown]
  - Dyspnoea [Unknown]
  - Alopecia [Unknown]
  - Arthralgia [Unknown]
  - Hot flush [Unknown]
  - Drug ineffective [Unknown]
